FAERS Safety Report 8111026-9 (Version None)
Quarter: 2012Q1

REPORT INFORMATION
  Report Type: 
  Country: None (occurrence: None)
  Receive Date: 20120203
  Receipt Date: 20110223
  Transmission Date: 20120608
  Serious: No
  Sender: FDA-Public Use
  Company Number: US-GLAXOSMITHKLINE-A0915080A

PATIENT
  Sex: Female

DRUGS (2)
  1. ANTIBIOTIC [Suspect]
  2. LAMICTAL [Suspect]
     Route: 048

REACTIONS (2)
  - HEADACHE [None]
  - DRUG INTERACTION [None]
